FAERS Safety Report 5161798-0 (Version None)
Quarter: 2006Q4

REPORT INFORMATION
  Report Type: 
  Country: None (occurrence: None)
  Receive Date: 20061130
  Receipt Date: 20061121
  Transmission Date: 20070319
  Serious: Yes (Other)
  Sender: FDA-Public Use
  Company Number: 2006UW25907

PATIENT
  Age: 21 Year
  Sex: Male

DRUGS (3)
  1. NEXIUM [Suspect]
     Indication: OESOPHAGITIS
     Route: 048
     Dates: start: 20061113, end: 20061120
  2. NEXIUM [Suspect]
     Route: 048
  3. FINALOP [Concomitant]
     Indication: ALOPECIA
     Route: 048
     Dates: start: 20051101

REACTIONS (3)
  - ABDOMINAL PAIN [None]
  - FAECES DISCOLOURED [None]
  - STOMACH DISCOMFORT [None]
